FAERS Safety Report 8833240 (Version 4)
Quarter: 2013Q2

REPORT INFORMATION
  Report Type: Report from Study
  Country: BR (occurrence: BR)
  Receive Date: 20121010
  Receipt Date: 20130513
  Transmission Date: 20140414
  Serious: Yes (Other)
  Sender: FDA-Public Use
  Company Number: PHHY2012BR088486

PATIENT
  Age: 61 Year
  Sex: Female

DRUGS (2)
  1. FORASEQ [Suspect]
     Indication: ASTHMA
     Dosage: 2 DF
  2. RITMONORM [Concomitant]
     Indication: CARDIAC DISORDER
     Dosage: UNK

REACTIONS (12)
  - Ataxia [Unknown]
  - Memory impairment [Recovering/Resolving]
  - Ulna fracture [Not Recovered/Not Resolved]
  - Upper limb fracture [Recovered/Resolved]
  - Radius fracture [Recovered/Resolved]
  - Asthma [Unknown]
  - Syncope [Recovered/Resolved]
  - Fall [Recovered/Resolved]
  - Bronchitis [Recovered/Resolved]
  - Pneumonia [Recovered/Resolved]
  - Dizziness [Recovered/Resolved]
  - Device malfunction [Unknown]
